FAERS Safety Report 10318005 (Version 2)
Quarter: 2014Q3

REPORT INFORMATION
  Report Type: Other
  Country: US (occurrence: US)
  Receive Date: 20140719
  Receipt Date: 20140719
  Transmission Date: 20150326
  Serious: Yes (Other)
  Sender: FDA-Public Use
  Company Number: US-GSKPPD-2014GSK007229

PATIENT
  Age: 57 Year
  Sex: Female

DRUGS (4)
  1. AVANDIA [Suspect]
     Active Substance: ROSIGLITAZONE MALEATE
     Indication: DIABETES MELLITUS
     Route: 048
  2. LASIX [Concomitant]
     Active Substance: FUROSEMIDE
     Dates: start: 200410
  3. LISINOPRIL. [Concomitant]
     Active Substance: LISINOPRIL
     Dates: start: 200410
  4. BUMEX [Concomitant]
     Active Substance: BUMETANIDE
     Route: 048
     Dates: start: 200410

REACTIONS (1)
  - Cardiac failure congestive [Recovered/Resolved]

NARRATIVE: CASE EVENT DATE: 20041010
